FAERS Safety Report 16715352 (Version 1)
Quarter: 2019Q4

REPORT INFORMATION
  Report Type: Spontaneous
  Country: US (occurrence: US)
  Receive Date: 20190816
  Receipt Date: 20190816
  Transmission Date: 20200122
  Serious: Yes (Life-Threatening, Hospitalization)
  Sender: FDA-Public Use
  Company Number: None

PATIENT
  Age: 67 Year
  Sex: Male

DRUGS (7)
  1. RAMIPRIL. [Suspect]
     Active Substance: RAMIPRIL
     Indication: HYPERTENSIVE NEPHROPATHY
     Route: 048
     Dates: start: 20171214, end: 20190807
  2. MAG-OXIDE 400MG [Concomitant]
  3. PREDNISONE 5MG [Concomitant]
     Active Substance: PREDNISONE
  4. TACROLIMUS 1MG [Concomitant]
     Active Substance: TACROLIMUS
  5. CINACALCET 30MG [Concomitant]
     Active Substance: CINACALCET
  6. ATORVASTATIN 40MG [Concomitant]
     Active Substance: ATORVASTATIN
  7. CARVEDILOL 12.5MG [Concomitant]
     Active Substance: CARVEDILOL

REACTIONS (1)
  - Angioedema [None]

NARRATIVE: CASE EVENT DATE: 20190808
